FAERS Safety Report 14596560 (Version 2)
Quarter: 2018Q2

REPORT INFORMATION
  Report Type: Spontaneous
  Country: US (occurrence: US)
  Receive Date: 20180304
  Receipt Date: 20180514
  Transmission Date: 20180711
  Serious: Yes (Hospitalization)
  Sender: FDA-Public Use
  Company Number: US-JNJFOC-20180226640

PATIENT
  Age: 81 Year
  Sex: Male

DRUGS (2)
  1. ASPIRIN. [Suspect]
     Active Substance: ASPIRIN
     Indication: PRODUCT USED FOR UNKNOWN INDICATION
     Dosage: BED TIME
     Route: 065
     Dates: start: 201702
  2. XARELTO [Suspect]
     Active Substance: RIVAROXABAN
     Indication: BLOOD COUNT ABNORMAL
     Route: 048
     Dates: start: 20170221, end: 201703

REACTIONS (3)
  - Internal haemorrhage [Unknown]
  - Product use in unapproved indication [Unknown]
  - Off label use [Unknown]

NARRATIVE: CASE EVENT DATE: 20170221
